FAERS Safety Report 25345505 (Version 1)
Quarter: 2025Q2

REPORT INFORMATION
  Report Type: Spontaneous
  Country: CN (occurrence: CN)
  Receive Date: 20250522
  Receipt Date: 20250522
  Transmission Date: 20250717
  Serious: Yes (Hospitalization, Other)
  Sender: ASTELLAS
  Company Number: CN-ASTELLAS-2025-AER-026919

PATIENT
  Age: 11 Year
  Sex: Male

DRUGS (3)
  1. TACROLIMUS [Suspect]
     Active Substance: TACROLIMUS
     Indication: Prophylaxis against transplant rejection
     Route: 065
     Dates: start: 20240229, end: 20240509
  2. MIZORIBINE [Suspect]
     Active Substance: MIZORIBINE
     Indication: Prophylaxis against transplant rejection
     Route: 065
     Dates: start: 20240229, end: 20240502
  3. METHYLPREDNISOLONE [Suspect]
     Active Substance: METHYLPREDNISOLONE
     Indication: Prophylaxis against transplant rejection
     Route: 065
     Dates: start: 20240229, end: 20240509

REACTIONS (6)
  - Cytomegalovirus viraemia [Recovering/Resolving]
  - Escherichia urinary tract infection [Unknown]
  - Candida infection [Unknown]
  - Urinary tract infection fungal [Unknown]
  - Epididymitis [Unknown]
  - Lymphocyte count decreased [Recovered/Resolved]

NARRATIVE: CASE EVENT DATE: 20240301
